FAERS Safety Report 4497985-4 (Version None)
Quarter: 2004Q4

REPORT INFORMATION
  Report Type: 
  Country: None (occurrence: None)
  Receive Date: 20041105
  Receipt Date: 20041102
  Transmission Date: 20050328
  Serious: Yes (Death)
  Sender: FDA-Public Use
  Company Number: KII-2000-0006530

PATIENT
  Age: 72 Year
  Sex: Female

DRUGS (2)
  1. OXYCONTIN [Suspect]
     Indication: CANCER PAIN
     Dosage: 20 MG, Q12H
  2. OXYIR CAPSULES 5 MG (OXYCODONE HYDROCHLORIDE) IR CAPSULE [Suspect]
     Indication: CANCER PAIN

REACTIONS (4)
  - LARGE INTESTINE PERFORATION [None]
  - LEUKAEMIA [None]
  - PATHOGEN RESISTANCE [None]
  - STREPTOCOCCAL INFECTION [None]
